FAERS Safety Report 11514647 (Version 1)
Quarter: 2015Q3

REPORT INFORMATION
  Report Type: Spontaneous
  Country: US (occurrence: US)
  Receive Date: 20150916
  Receipt Date: 20150916
  Transmission Date: 20151125
  Serious: No
  Sender: FDA-Public Use
  Company Number: US-MYLANLABS-2015M1025620

PATIENT
  Sex: Male

DRUGS (1)
  1. IFOSFAMIDE INJECTION [Suspect]
     Active Substance: IFOSFAMIDE
     Dosage: 6.5 G OVER 1H
     Route: 042
     Dates: start: 20150328, end: 20150328

REACTIONS (2)
  - Confusional state [Recovered/Resolved]
  - Gait disturbance [Recovered/Resolved]

NARRATIVE: CASE EVENT DATE: 20150328
